FAERS Safety Report 13628673 (Version 1)
Quarter: 2017Q2

REPORT INFORMATION
  Report Type: Spontaneous
  Country: FR (occurrence: FR)
  Receive Date: 20170607
  Receipt Date: 20170607
  Transmission Date: 20170830
  Serious: Yes (Other)
  Sender: FDA-Public Use
  Company Number: FR-AMGEN-FRASP2017084019

PATIENT
  Age: 75 Year
  Sex: Female

DRUGS (8)
  1. DEBRIDAT [Concomitant]
     Active Substance: TRIMEBUTINE MALEATE
  2. SPAGULAX [Concomitant]
     Active Substance: PLANTAGO OVATA SEED
  3. KARDEGIC [Concomitant]
     Active Substance: ASPIRIN LYSINE
  4. LACTULOSE. [Concomitant]
     Active Substance: LACTULOSE
  5. METEOSPASMYL [Concomitant]
     Active Substance: ALVERINE CITRATE\DIMETHICONE
  6. PROLIA [Suspect]
     Active Substance: DENOSUMAB
     Indication: PRODUCT USED FOR UNKNOWN INDICATION
     Dosage: UNK
     Route: 065
     Dates: start: 201607
  7. UVEDOSE [Concomitant]
     Active Substance: CHOLECALCIFEROL
  8. CANDESARTAN. [Concomitant]
     Active Substance: CANDESARTAN

REACTIONS (10)
  - Pollakiuria [Not Recovered/Not Resolved]
  - Decreased appetite [Not Recovered/Not Resolved]
  - Pain in jaw [Not Recovered/Not Resolved]
  - Dizziness [Not Recovered/Not Resolved]
  - Constipation [Not Recovered/Not Resolved]
  - Headache [Not Recovered/Not Resolved]
  - Arthralgia [Not Recovered/Not Resolved]
  - Ear infection [Not Recovered/Not Resolved]
  - Flushing [Not Recovered/Not Resolved]
  - Fatigue [Not Recovered/Not Resolved]

NARRATIVE: CASE EVENT DATE: 201703
